FAERS Safety Report 11839989 (Version 1)
Quarter: 2015Q4

REPORT INFORMATION
  Report Type: Spontaneous
  Country: IL (occurrence: None)
  Receive Date: 20151215
  Receipt Date: 20151215
  Transmission Date: 20160305
  Serious: Yes (Hospitalization)
  Sender: FDA-Public Use
  Company Number: None

PATIENT
  Age: 81 Year
  Sex: Female

DRUGS (9)
  1. CYCLOSPORINE. [Concomitant]
     Active Substance: CYCLOSPORINE
  2. VIEKIRAX [Suspect]
     Active Substance: OMBITASVIR\PARITAPREVIR\RITONAVIR
     Dosage: 2 PILLS ?QD
     Dates: start: 20150615, end: 20151130
  3. RIBAVIRIN 200 MG [Suspect]
     Active Substance: RIBAVIRIN
     Indication: HEPATITIS C
     Dosage: 4 PILLS?BID
     Dates: start: 20150615, end: 20150703
  4. ZANIDEX [Concomitant]
     Active Substance: RANITIDINE HYDROCHLORIDE
  5. INSULIN [Concomitant]
     Active Substance: INSULIN NOS
  6. CELLCEPT [Concomitant]
     Active Substance: MYCOPHENOLATE MOFETIL\MYCOPHENOLATE MOFETIL HYDROCHLORIDE
  7. CARDILOC [Concomitant]
     Active Substance: BISOPROLOL FUMARATE
  8. EXVIERA [Suspect]
     Active Substance: DASABUVIR
     Indication: HEPATITIS C
     Dosage: 2 PILLS?BID
     Dates: start: 20150615, end: 20151130
  9. ENALADEX [Concomitant]
     Active Substance: ENALAPRIL MALEATE

REACTIONS (6)
  - Cough [None]
  - Vomiting [None]
  - Asthenia [None]
  - Abdominal pain [None]
  - Pruritus generalised [None]
  - Dysuria [None]

NARRATIVE: CASE EVENT DATE: 20150701
